FAERS Safety Report 26014452 (Version 1)
Quarter: 2025Q4

REPORT INFORMATION
  Report Type: Report from Study
  Country: US (occurrence: None)
  Receive Date: 20251108
  Receipt Date: 20251108
  Transmission Date: 20260118
  Serious: No
  Sender: UCB
  Company Number: US-UCBSA-2025066785

PATIENT
  Age: 25 Year

DRUGS (1)
  1. BIMEKIZUMAB [Suspect]
     Active Substance: BIMEKIZUMAB
     Indication: Product used for unknown indication
     Dosage: 320 MILLIGRAM, EV 4 WEEKS

REACTIONS (6)
  - Injection site pain [Recovered/Resolved]
  - Injection site erythema [Recovered/Resolved]
  - Product leakage [Unknown]
  - Accidental exposure to product [Unknown]
  - Device breakage [Unknown]
  - Product dose omission issue [Unknown]
